FAERS Safety Report 6991340-0 (Version None)
Quarter: 2010Q3

REPORT INFORMATION
  Report Type: 
  Country: None (occurrence: None)
  Receive Date: 20100916
  Receipt Date: 20090820
  Transmission Date: 20110219
  Serious: No
  Sender: FDA-Public Use
  Company Number: US-WYE-H10673209

PATIENT
  Sex: Male

DRUGS (3)
  1. PRISTIQ [Suspect]
     Indication: DEPRESSION
     Route: 048
     Dates: start: 20090702
  2. PRISTIQ [Suspect]
     Indication: SOCIAL PHOBIA
  3. ATIVAN [Suspect]
     Dosage: DOSE UNKNOWN
     Route: 065

REACTIONS (5)
  - ABNORMAL DREAMS [None]
  - DECREASED APPETITE [None]
  - ERYTHEMA [None]
  - FATIGUE [None]
  - SKIN BURNING SENSATION [None]
